FAERS Safety Report 8617127 (Version 2)
Quarter: 2012Q4

REPORT INFORMATION
  Report Type: Spontaneous
  Country: DK (occurrence: None)
  Receive Date: 20120601
  Receipt Date: 20120813
  Transmission Date: 20130627
  Serious: Yes (Hospitalization)
  Sender: FDA-Public Use
  Company Number: 2012MA006434

PATIENT
  Age: 75 Year
  Sex: Male

DRUGS (7)
  1. NAPROXEN [Suspect]
     Indication: PAIN
     Dosage: 250 MG, BID, PO
     Route: 048
     Dates: start: 20120426, end: 20120428
  2. WARFARIN SODIUM [Concomitant]
  3. SIMVASTATIN [Concomitant]
  4. OMEPRAZOLE [Concomitant]
  5. METFORMIN HYDROCHLORIDE [Concomitant]
  6. FINASTERIDE [Concomitant]
  7. ALFUZOSIN HYDROCHLORIDE [Concomitant]

REACTIONS (3)
  - Anuria [None]
  - Blood creatinine increased [None]
  - Haemodialysis [None]
